FAERS Safety Report 7043629-7 (Version None)
Quarter: 2010Q4

REPORT INFORMATION
  Report Type: 
  Country: None (occurrence: None)
  Receive Date: 20101013
  Receipt Date: 20101005
  Transmission Date: 20110411
  Serious: Yes (Hospitalization)
  Sender: FDA-Public Use
  Company Number: B0678443A

PATIENT
  Sex: Female
  Weight: 50.2 kg

DRUGS (3)
  1. PAZOPANIB [Suspect]
     Indication: MALIGNANT NEOPLASM PROGRESSION
     Route: 048
     Dates: start: 20100706
  2. IFOSFAMIDE [Suspect]
     Indication: MALIGNANT NEOPLASM PROGRESSION
     Route: 042
     Dates: start: 20100706
  3. NIFEDIPINE [Concomitant]
     Dosage: 60MG PER DAY
     Route: 048
     Dates: start: 20100810

REACTIONS (1)
  - MALAISE [None]
